FAERS Safety Report 6186159-7 (Version None)
Quarter: 2009Q2

REPORT INFORMATION
  Report Type: 
  Country: None (occurrence: None)
  Receive Date: 20090507
  Receipt Date: 20090507
  Transmission Date: 20091009
  Serious: Yes (Other)
  Sender: FDA-Public Use
  Company Number: None

PATIENT
  Age: 24 Year
  Sex: Female
  Weight: 84.369 kg

DRUGS (1)
  1. CEPHALEXIN [Suspect]
     Indication: INGROWN HAIR
     Dosage: 500 MG EVERY 6 HOURS UNK
     Dates: start: 20090101, end: 20090107

REACTIONS (3)
  - ABORTION SPONTANEOUS [None]
  - DRUG EXPOSURE DURING PREGNANCY [None]
  - DRUG PRESCRIBING ERROR [None]
